FAERS Safety Report 7439031-6 (Version None)
Quarter: 2011Q2

REPORT INFORMATION
  Report Type: 
  Country: None (occurrence: None)
  Receive Date: 20110427
  Receipt Date: 20110418
  Transmission Date: 20111010
  Serious: Yes (Hospitalization)
  Sender: FDA-Public Use
  Company Number: US-BIOGENIDEC-2011BI006539

PATIENT
  Age: 50 Year
  Sex: Female

DRUGS (3)
  1. AVONEX [Suspect]
     Route: 030
     Dates: start: 20030901, end: 20040801
  2. AVONEX [Suspect]
     Indication: MULTIPLE SCLEROSIS
     Route: 030
     Dates: start: 20071001
  3. AVONEX [Suspect]
     Route: 030
     Dates: start: 19990101, end: 20030801

REACTIONS (4)
  - MALAISE [None]
  - RENAL IMPAIRMENT [None]
  - KIDNEY INFECTION [None]
  - NEPHROLITHIASIS [None]
